FAERS Safety Report 9191444 (Version 1)
Quarter: 2013Q1

REPORT INFORMATION
  Report Type: Spontaneous
  Country: US (occurrence: US)
  Receive Date: 20130326
  Receipt Date: 20130326
  Transmission Date: 20140127
  Serious: Yes (Other)
  Sender: FDA-Public Use
  Company Number: CHPA2013US004873

PATIENT
  Age: 3 Year
  Sex: Male

DRUGS (4)
  1. TRIAMINIC COLD AND ALLERGY [Suspect]
     Indication: SEASONAL ALLERGY
     Dosage: 0.6 TSP, UNK
     Route: 048
  2. CHILDREN^S ZYRTEC [Concomitant]
  3. CHILDREN^S ALLEGRA ALLERGY [Concomitant]
  4. BENADRYL ^PARKE DAVIS^                  /ISR/ [Concomitant]

REACTIONS (5)
  - Asthma [Not Recovered/Not Resolved]
  - Bronchitis [Not Recovered/Not Resolved]
  - Concomitant disease aggravated [Not Recovered/Not Resolved]
  - Therapeutic response unexpected [Unknown]
  - Prescribed overdose [Unknown]
